FAERS Safety Report 5325216-1 (Version None)
Quarter: 2007Q2

REPORT INFORMATION
  Report Type: 
  Country: None (occurrence: None)
  Receive Date: 20070515
  Receipt Date: 20070503
  Transmission Date: 20071010
  Serious: Yes (Hospitalization)
  Sender: FDA-Public Use
  Company Number: US-ROCHE-496026

PATIENT
  Age: 62 Year
  Sex: Male

DRUGS (4)
  1. EC-NAPROSYN [Suspect]
     Indication: SPINAL OSTEOARTHRITIS
     Route: 065
     Dates: start: 20070403, end: 20070420
  2. OXYCODONE HCL [Concomitant]
     Dosage: THE PATIENT WAS TAKING OXYCODONE ER 40 MG TWICE DAILY.
  3. OXYCODONE AND ACETAMINOPHEN [Concomitant]
     Dosage: THE PATIENT WAS TAKING OXYCODONE + ACETAMINOPHEN 7.5/500 MG 1 TABLET DAILY.
  4. IMITREX [Concomitant]

REACTIONS (5)
  - HYPERSENSITIVITY [None]
  - HYPOTENSION [None]
  - LOSS OF CONSCIOUSNESS [None]
  - VOMITING [None]
  - WRONG TECHNIQUE IN DRUG USAGE PROCESS [None]
